FAERS Safety Report 7469026-8 (Version None)
Quarter: 2011Q2

REPORT INFORMATION
  Report Type: 
  Country: None (occurrence: None)
  Receive Date: 20110510
  Receipt Date: 20110426
  Transmission Date: 20111010
  Serious: Yes (Other)
  Sender: FDA-Public Use
  Company Number: KR-RANBAXY-2011RR-44188

PATIENT
  Age: 80 Year
  Sex: Male

DRUGS (6)
  1. CIMETIDINE [Suspect]
     Indication: URTICARIA
  2. RANITIDINE [Suspect]
  3. CIMETIDINE [Suspect]
  4. FAMOTIDINE [Suspect]
  5. ACETAMINOPHEN [Suspect]
     Indication: URTICARIA
  6. CHLORPHENIRAMINE MALEATE [Suspect]
     Indication: URTICARIA

REACTIONS (4)
  - DRUG HYPERSENSITIVITY [None]
  - ANAPHYLACTIC REACTION [None]
  - URTICARIA [None]
  - CONFUSIONAL STATE [None]
